FAERS Safety Report 11799734 (Version 2)
Quarter: 2016Q1

REPORT INFORMATION
  Report Type: Spontaneous
  Country: NL (occurrence: NL)
  Receive Date: 20151203
  Receipt Date: 20160105
  Transmission Date: 20160525
  Serious: Yes (Life-Threatening)
  Sender: FDA-Public Use
  Company Number: PHHY2015NL154747

PATIENT
  Age: 68 Year
  Sex: Male
  Weight: 77 kg

DRUGS (9)
  1. PREDNISON [Suspect]
     Active Substance: PREDNISONE
     Indication: PLASMA CELL MYELOMA
     Dosage: 112 MG, QD
     Route: 065
     Dates: start: 20150929
  2. VALACICLOVIR [Concomitant]
     Active Substance: VALACYCLOVIR HYDROCHLORIDE
     Indication: PRODUCT USED FOR UNKNOWN INDICATION
     Dosage: 500 MG, BID, 2DD 500MG
     Route: 048
     Dates: start: 20150929
  3. BORTEZOMIB [Suspect]
     Active Substance: BORTEZOMIB
     Indication: PLASMA CELL MYELOMA
     Dosage: 2.4 MG, QD
     Route: 058
     Dates: start: 20150929
  4. METOCLOPRAMIDE. [Concomitant]
     Active Substance: METOCLOPRAMIDE
     Indication: PRODUCT USED FOR UNKNOWN INDICATION
     Dosage: 10 MG, TID, 3DD10MG
     Route: 048
     Dates: start: 20150929
  5. PREDNISON [Suspect]
     Active Substance: PREDNISONE
     Dosage: 1DD112MG
     Route: 065
     Dates: start: 20150929
  6. PANTOPRAZOL [Concomitant]
     Active Substance: PANTOPRAZOLE SODIUM
     Indication: PRODUCT USED FOR UNKNOWN INDICATION
     Dosage: 40 MG, BID, (2DD1)
     Route: 042
  7. MELFALAN//MELPHALAN [Suspect]
     Active Substance: MELPHALAN
     Indication: PLASMA CELL MYELOMA
     Dosage: 18 MG, QD
     Route: 065
     Dates: start: 20150929
  8. AMIDARONE [Concomitant]
     Active Substance: AMIODARONE
     Indication: PRODUCT USED FOR UNKNOWN INDICATION
     Dosage: 200 MG, TID, (3DD1)
     Route: 048
  9. MEROPENEM. [Concomitant]
     Active Substance: MEROPENEM
     Indication: PRODUCT USED FOR UNKNOWN INDICATION
     Dosage: 500 MG, BID, (2DD)
     Route: 042

REACTIONS (1)
  - Mucosal inflammation [Not Recovered/Not Resolved]

NARRATIVE: CASE EVENT DATE: 20151014
